FAERS Safety Report 5951023-2 (Version None)
Quarter: 2008Q4

REPORT INFORMATION
  Report Type: 
  Country: None (occurrence: None)
  Receive Date: 20081110
  Receipt Date: 20081030
  Transmission Date: 20090506
  Serious: No
  Sender: FDA-Public Use
  Company Number: US024974

PATIENT

DRUGS (2)
  1. FENTORA [Suspect]
     Indication: CANCER PAIN
     Dosage: 1600 UG Q3HR BUCCAL
     Route: 002
  2. DILAUDID [Suspect]
     Indication: CANCER PAIN
     Dosage: 4-8 MG EVERY 4 HOURS

REACTIONS (2)
  - DRUG PRESCRIBING ERROR [None]
  - MEDICATION ERROR [None]
